FAERS Safety Report 4564247-6 (Version None)
Quarter: 2005Q1

REPORT INFORMATION
  Report Type: 
  Country: None (occurrence: None)
  Receive Date: 20050128
  Receipt Date: 20040406
  Transmission Date: 20050727
  Serious: Yes (Life-Threatening, Hospitalization, Other)
  Sender: FDA-Public Use
  Company Number: US-GLAXOSMITHKLINE-A0506287A

PATIENT
  Age: 41 Year
  Sex: Male
  Weight: 68.2 kg

DRUGS (5)
  1. COMBIVIR [Suspect]
     Indication: HIV INFECTION
     Dosage: 1TAB TWICE PER DAY
     Route: 048
     Dates: start: 19980622, end: 20040205
  2. LAMIVUDINE [Concomitant]
     Indication: HIV INFECTION
     Route: 065
  3. NEVIRAPINE [Concomitant]
     Indication: HIV INFECTION
  4. ABACAVIR [Concomitant]
     Indication: HIV INFECTION
  5. MULTI-VITAMIN [Concomitant]

REACTIONS (6)
  - ANAEMIA [None]
  - BLOOD ERYTHROPOIETIN INCREASED [None]
  - COUGH [None]
  - DYSPNOEA EXERTIONAL [None]
  - HAEMATOCRIT DECREASED [None]
  - PALPITATIONS [None]
